FAERS Safety Report 9385048 (Version 1)
Quarter: 2013Q3

REPORT INFORMATION
  Report Type: Spontaneous
  Country: US (occurrence: US)
  Receive Date: 20130705
  Receipt Date: 20130705
  Transmission Date: 20140515
  Serious: Yes (Other)
  Sender: FDA-Public Use
  Company Number: US-GLAXOSMITHKLINE-A1026675A

PATIENT
  Age: 24 Year
  Sex: Female
  Weight: 47.7 kg

DRUGS (24)
  1. BENLYSTA [Suspect]
     Indication: SYSTEMIC LUPUS ERYTHEMATOSUS
     Dosage: 480MG CYCLIC
     Route: 042
     Dates: start: 20120627, end: 201212
  2. PREDNISONE [Concomitant]
  3. BENADRYL [Concomitant]
  4. GABAPENTIN [Concomitant]
  5. TRAMADOL [Concomitant]
  6. VICODIN [Concomitant]
  7. ZOFRAN [Concomitant]
  8. PROMETHAZINE [Concomitant]
  9. PERCOCET [Concomitant]
  10. TYLENOL [Concomitant]
  11. SOLUMEDROL [Concomitant]
  12. PLAQUENIL [Concomitant]
  13. BACLOFEN [Concomitant]
  14. LIDODERM [Concomitant]
  15. CALCIUM [Concomitant]
  16. ADDERALL [Concomitant]
  17. RESTORIL [Concomitant]
  18. PROZAC [Concomitant]
  19. HYDROMORPHONE HCL [Concomitant]
  20. XANAX [Concomitant]
  21. FROVA [Concomitant]
  22. BABY ASPIRIN [Concomitant]
  23. AZATHIOPRINE [Concomitant]
  24. PROVIGIL [Concomitant]

REACTIONS (42)
  - Rash [Recovered/Resolved]
  - Dermatitis contact [Recovered/Resolved]
  - Nausea [Recovered/Resolved]
  - Vomiting [Recovered/Resolved]
  - Diarrhoea [Recovered/Resolved]
  - Rash erythematous [Recovered/Resolved]
  - Pain [Unknown]
  - Fatigue [Unknown]
  - Chills [Unknown]
  - Skin disorder [Unknown]
  - Dry skin [Unknown]
  - Photosensitivity reaction [Unknown]
  - Dysphagia [Unknown]
  - Temperature intolerance [Unknown]
  - Dizziness [Unknown]
  - Headache [Unknown]
  - Balance disorder [Unknown]
  - Asthenia [Unknown]
  - Dry eye [Unknown]
  - Ocular hyperaemia [Unknown]
  - Weight decreased [Unknown]
  - Systemic lupus erythematosus [Unknown]
  - Stomatitis [Unknown]
  - Dry mouth [Unknown]
  - Mouth ulceration [Unknown]
  - Arthralgia [Unknown]
  - Joint stiffness [Unknown]
  - Joint lock [Unknown]
  - Joint swelling [Unknown]
  - Dysphonia [Unknown]
  - Dyspnoea [Unknown]
  - Laryngeal oedema [Recovered/Resolved]
  - Pruritus generalised [Recovered/Resolved]
  - Local swelling [Recovered/Resolved]
  - Swelling face [Recovered/Resolved]
  - Eye swelling [Recovered/Resolved]
  - Throat tightness [Recovered/Resolved]
  - Pain in extremity [Recovered/Resolved]
  - Body temperature fluctuation [Not Recovered/Not Resolved]
  - Infusion related reaction [Recovered/Resolved]
  - Bronchospasm [Recovered/Resolved]
  - Pyrexia [Recovered/Resolved]
